FAERS Safety Report 9681818 (Version 2)
Quarter: 2013Q4

REPORT INFORMATION
  Report Type: Report from Study
  Country: US (occurrence: US)
  Receive Date: 20131111
  Receipt Date: 20131111
  Transmission Date: 20140711
  Serious: Yes (Hospitalization)
  Sender: FDA-Public Use
  Company Number: US-ABBVIE-13P-163-1162200-00

PATIENT
  Age: 28 Year
  Sex: Female
  Weight: 70.37 kg

DRUGS (13)
  1. HUMIRA [Suspect]
     Indication: CROHN^S DISEASE
     Route: 058
     Dates: start: 201204, end: 201211
  2. HUMIRA [Suspect]
     Route: 058
     Dates: start: 201301
  3. PENTASA [Concomitant]
     Indication: CROHN^S DISEASE
  4. LEVSIN [Concomitant]
     Indication: CROHN^S DISEASE
  5. 6-MP [Concomitant]
     Indication: CROHN^S DISEASE
  6. FLAGYL [Concomitant]
     Indication: PRODUCT USED FOR UNKNOWN INDICATION
  7. XIFAXAN [Concomitant]
     Indication: PRODUCT USED FOR UNKNOWN INDICATION
  8. ENTOCORT [Concomitant]
     Indication: CROHN^S DISEASE
  9. PREDNISONE [Concomitant]
     Indication: CROHN^S DISEASE
  10. ZOFRAN [Concomitant]
     Indication: CROHN^S DISEASE
  11. OMEPRAZOLE [Concomitant]
     Indication: CROHN^S DISEASE
  12. PROTONIX [Concomitant]
     Indication: CROHN^S DISEASE
  13. PROMETHAZINE [Concomitant]
     Indication: PRODUCT USED FOR UNKNOWN INDICATION

REACTIONS (3)
  - Intestinal perforation [Recovered/Resolved]
  - Sepsis [Recovered/Resolved]
  - Crohn^s disease [Recovered/Resolved]
